FAERS Safety Report 9391536 (Version 1)
Quarter: 2013Q3

REPORT INFORMATION
  Report Type: Spontaneous
  Country: US (occurrence: None)
  Receive Date: 20130705
  Receipt Date: 20130705
  Transmission Date: 20140515
  Serious: Yes (Hospitalization)
  Sender: FDA-Public Use
  Company Number: 2013P1010718

PATIENT
  Age: 24 Year
  Sex: Male

DRUGS (1)
  1. PROPRANOLOL [Suspect]

REACTIONS (7)
  - Mental status changes [None]
  - Agitation [None]
  - Disorientation [None]
  - Tachycardia [None]
  - Hypertension [None]
  - Hyperhidrosis [None]
  - Mydriasis [None]
